FAERS Safety Report 5210271-X (Version None)
Quarter: 2007Q1

REPORT INFORMATION
  Report Type: 
  Country: None (occurrence: None)
  Receive Date: 20070112
  Receipt Date: 20070112
  Transmission Date: 20070707
  Serious: Yes (Death)
  Sender: FDA-Public Use
  Company Number: None

PATIENT
  Age: 39 Year
  Sex: Female
  Weight: 90.7194 kg

DRUGS (4)
  1. METHADONE HCL [Suspect]
     Indication: PAIN MANAGEMENT
     Dosage: 10 MG OR 40 MG - UNCERTAIN    UP TO 8 PER DAY   PO
     Route: 048
  2. KLONOPIN [Concomitant]
  3. CLONIDINE [Concomitant]
  4. LORTAB [Concomitant]

REACTIONS (2)
  - MEDICATION ERROR [None]
  - OVERDOSE [None]
